FAERS Safety Report 21305371 (Version 2)
Quarter: 2022Q4

REPORT INFORMATION
  Report Type: Spontaneous
  Country: US (occurrence: None)
  Receive Date: 20220908
  Receipt Date: 20221019
  Transmission Date: 20230112
  Serious: No
  Sender: FDA-Public Use
  Company Number: 2022A283001

PATIENT
  Age: 50 Year
  Sex: Female

DRUGS (1)
  1. FARXIGA [Suspect]
     Active Substance: DAPAGLIFLOZIN PROPANEDIOL
     Indication: Diabetes mellitus management
     Dosage: UNKNOWN
     Route: 048

REACTIONS (4)
  - Fungal infection [Unknown]
  - Weight decreased [Unknown]
  - Photodermatosis [Unknown]
  - Intertrigo [Unknown]
